FAERS Safety Report 6970810-5 (Version None)
Quarter: 2010Q3

REPORT INFORMATION
  Report Type: 
  Country: None (occurrence: None)
  Receive Date: 20100908
  Receipt Date: 20100827
  Transmission Date: 20110219
  Serious: Yes (Other)
  Sender: FDA-Public Use
  Company Number: A0879655A

PATIENT
  Sex: Female

DRUGS (1)
  1. AVANDAMET [Suspect]
     Dosage: 1TAB TWICE PER DAY
     Dates: start: 20041117

REACTIONS (1)
  - TRANSIENT ISCHAEMIC ATTACK [None]
